FAERS Safety Report 23526329 (Version 1)
Quarter: 2024Q1

REPORT INFORMATION
  Report Type: Spontaneous
  Country: US (occurrence: None)
  Receive Date: 20240214
  Receipt Date: 20240214
  Transmission Date: 20240409
  Serious: Yes (Hospitalization)
  Sender: FDA-Public Use
  Company Number: None

PATIENT
  Age: 34 Year
  Sex: Female
  Weight: 58.5 kg

DRUGS (3)
  1. BRIVUDINE [Suspect]
     Active Substance: BRIVUDINE
     Indication: Herpes zoster
     Dosage: FREQUENCY : DAILY;?
     Route: 048
     Dates: start: 20140401, end: 20140405
  2. HALDOL [Suspect]
     Active Substance: HALOPERIDOL
  3. VITAMIN B COMPLEX [Concomitant]
     Active Substance: CYANOCOBALAMIN\DEXPANTHENOL\NIACINAMIDE\PYRIDOXINE HYDROCHLORIDE\RIBOFLAVIN 5^-PHOSPHATE SODIUM\THIA

REACTIONS (6)
  - Fall [None]
  - Movement disorder [None]
  - Asthenia [None]
  - Chorea [None]
  - Stress [None]
  - Migraine [None]

NARRATIVE: CASE EVENT DATE: 20140401
